FAERS Safety Report 14490238 (Version 1)
Quarter: 2018Q1

REPORT INFORMATION
  Report Type: Report from Study
  Country: None (occurrence: BR)
  Receive Date: 20180206
  Receipt Date: 20180206
  Transmission Date: 20180509
  Serious: Yes (Other)
  Sender: FDA-Public Use
  Company Number: BR-ABBVIE-18K-020-2244607-00

PATIENT
  Sex: Female
  Weight: 81 kg

DRUGS (1)
  1. HUMIRA [Suspect]
     Active Substance: ADALIMUMAB
     Indication: PSORIATIC ARTHROPATHY
     Route: 058
     Dates: start: 20171219, end: 20180126

REACTIONS (8)
  - Dermatitis [Unknown]
  - Toxicity to various agents [Unknown]
  - Fungal skin infection [Unknown]
  - Secretion discharge [Unknown]
  - Skin exfoliation [Unknown]
  - Rash macular [Unknown]
  - Pain [Unknown]
  - Pyrexia [Unknown]
